FAERS Safety Report 16400329 (Version 1)
Quarter: 2019Q2

REPORT INFORMATION
  Report Type: Spontaneous
  Country: IT (occurrence: IT)
  Receive Date: 20190606
  Receipt Date: 20190606
  Transmission Date: 20190711
  Serious: Yes (Other)
  Sender: FDA-Public Use
  Company Number: IT-TEVA-2019-IT-1058314

PATIENT
  Age: 89 Year
  Sex: Female

DRUGS (5)
  1. FLUXUM [Concomitant]
     Active Substance: PARNAPARIN SODIUM
  2. LOSARTAN. [Suspect]
     Active Substance: LOSARTAN
     Indication: HYPERTENSION
     Route: 048
     Dates: start: 20180101, end: 20180824
  3. MEDROL [Concomitant]
     Active Substance: METHYLPREDNISOLONE
  4. MIRTAZAPINE. [Concomitant]
     Active Substance: MIRTAZAPINE
  5. ALIFLUS DISKUS 50 MICROGRAMMI/500 MICROGRAMMI/DOSE DI POLVERE PER INAL [Concomitant]

REACTIONS (5)
  - Renal impairment [Recovering/Resolving]
  - Malaise [Recovering/Resolving]
  - Hyponatraemia [Recovering/Resolving]
  - Dehydration [Recovering/Resolving]
  - Blood pressure abnormal [Recovering/Resolving]

NARRATIVE: CASE EVENT DATE: 20180824
